FAERS Safety Report 14389118 (Version 3)
Quarter: 2019Q2

REPORT INFORMATION
  Report Type: Spontaneous
  Country: US (occurrence: US)
  Receive Date: 20180115
  Receipt Date: 20190424
  Transmission Date: 20190711
  Serious: Yes (Other)
  Sender: FDA-Public Use
  Company Number: US-SA-2017SA232887

PATIENT
  Age: 49 Year
  Sex: Female
  Weight: 73 kg

DRUGS (5)
  1. TAXOTERE [Suspect]
     Active Substance: DOCETAXEL
     Indication: BREAST CANCER FEMALE
     Dosage: 134 MG, Q3W
     Route: 042
     Dates: start: 20101022, end: 20101022
  2. TAXOL [Concomitant]
     Active Substance: PACLITAXEL
  3. TAXOTERE [Suspect]
     Active Substance: DOCETAXEL
     Dosage: 134 MG, Q3W
     Route: 042
     Dates: start: 20110204, end: 20110204
  4. DOXORUBICIN [Concomitant]
     Active Substance: DOXORUBICIN
  5. NEOSAR [Concomitant]
     Active Substance: CYCLOPHOSPHAMIDE

REACTIONS (6)
  - Anxiety [Unknown]
  - Impaired quality of life [Unknown]
  - Alopecia [Recovering/Resolving]
  - Pain [Unknown]
  - Psychological trauma [Unknown]
  - Emotional distress [Unknown]

NARRATIVE: CASE EVENT DATE: 20101122
